FAERS Safety Report 6770932-8 (Version None)
Quarter: 2010Q2

REPORT INFORMATION
  Report Type: 
  Country: None (occurrence: None)
  Receive Date: 20100616
  Receipt Date: 20100611
  Transmission Date: 20101027
  Serious: Yes (Hospitalization)
  Sender: FDA-Public Use
  Company Number: US-BIOGENIDEC-2010BI017197

PATIENT
  Age: 57 Year
  Sex: Female
  Weight: 102 kg

DRUGS (1)
  1. AVONEX [Suspect]
     Indication: MULTIPLE SCLEROSIS
     Route: 030
     Dates: start: 20040801, end: 20091201

REACTIONS (5)
  - ATRIAL FIBRILLATION [None]
  - BRONCHITIS [None]
  - CARDIAC FAILURE CONGESTIVE [None]
  - INSOMNIA [None]
  - INTRACARDIAC THROMBUS [None]
